FAERS Safety Report 12803652 (Version 1)
Quarter: 2016Q4

REPORT INFORMATION
  Report Type: Spontaneous
  Country: US (occurrence: US)
  Receive Date: 20161003
  Receipt Date: 20161003
  Transmission Date: 20170207
  Serious: Yes (Other)
  Sender: FDA-Public Use
  Company Number: US-TEVA-696682USA

PATIENT
  Sex: Female

DRUGS (1)
  1. PROAIR RESPICLICK [Suspect]
     Active Substance: ALBUTEROL SULFATE

REACTIONS (5)
  - Tongue injury [Unknown]
  - Heart rate increased [Unknown]
  - Drug ineffective [Unknown]
  - Intentional overdose [Unknown]
  - Intentional product misuse [Unknown]
